FAERS Safety Report 5668731-3 (Version None)
Quarter: 2008Q1

REPORT INFORMATION
  Report Type: 
  Country: None (occurrence: None)
  Receive Date: 20080312
  Receipt Date: 20080312
  Transmission Date: 20080703
  Serious: Yes (Hospitalization)
  Sender: FDA-Public Use
  Company Number: None

PATIENT
  Age: 78 Year
  Sex: Male
  Weight: 72 kg

DRUGS (2)
  1. IRINOTECAN HCL [Suspect]
     Indication: COLORECTAL CANCER
     Dosage: 200MG ONCE IV
     Route: 042
     Dates: start: 20071009, end: 20071009
  2. CETUXIMAB [Suspect]
     Indication: COLORECTAL CANCER
     Dosage: 750MG ONCE IV
     Route: 042
     Dates: start: 20071009, end: 20071009

REACTIONS (5)
  - ANAEMIA [None]
  - DEHYDRATION [None]
  - DIARRHOEA [None]
  - DIZZINESS [None]
  - RENAL FAILURE ACUTE [None]
